FAERS Safety Report 7599093-2 (Version None)
Quarter: 2011Q3

REPORT INFORMATION
  Report Type: 
  Country: None (occurrence: None)
  Receive Date: 20110711
  Receipt Date: 20090930
  Transmission Date: 20111222
  Serious: Yes (Death, Other)
  Sender: FDA-Public Use
  Company Number: US-BAYER-200934869NA

PATIENT
  Age: 70 Year
  Sex: Male
  Weight: 66 kg

DRUGS (17)
  1. AMIODARONE HCL [Concomitant]
     Dosage: 150 MG, UNK
     Route: 042
     Dates: start: 20040521, end: 20040521
  2. FELODIPINE [Concomitant]
     Dosage: 10 MG, QD
     Route: 048
     Dates: start: 20040519
  3. PLAVIX [Concomitant]
     Dosage: 75 MG, QD
     Route: 048
     Dates: start: 20040519
  4. PROTAMINE SULFATE [Concomitant]
     Dosage: 250 MG, UNK
     Route: 042
     Dates: start: 20040521
  5. TRASYLOL [Suspect]
     Dosage: UNK, INFUSION
     Route: 042
     Dates: start: 20040521, end: 20040521
  6. THEOPHYLLINE [Concomitant]
     Dosage: UNK
     Dates: start: 20040518
  7. HEPARIN [Concomitant]
     Dosage: 25000 U, UNK
     Route: 042
     Dates: start: 20040519
  8. METOPROLOL TARTRATE [Concomitant]
     Dosage: 50 MG, BID
     Route: 048
     Dates: start: 20040519
  9. ANCEF [Concomitant]
     Dosage: UNK
     Dates: start: 20040521
  10. TRASYLOL [Suspect]
     Dosage: UNK, LOADING DOSE
     Route: 042
     Dates: start: 20040521, end: 20040521
  11. PREDNISONE [Concomitant]
     Dosage: 60 MG, EVERY SIX HOURS
     Route: 048
     Dates: start: 20040519
  12. VANCOMYCIN [Concomitant]
     Dosage: 1 G, UNK
     Route: 042
     Dates: start: 20040521
  13. CONTRAST MEDIA [Concomitant]
     Indication: CATHETERISATION CARDIAC
     Dosage: UNK
     Dates: start: 20040519
  14. TRASYLOL [Suspect]
     Indication: PRODUCT USED FOR UNKNOWN INDICATION
     Dosage: 1 ML, INITIAL DOSE
     Route: 042
     Dates: start: 20040521, end: 20040521
  15. HEPARIN [Concomitant]
     Dosage: 5000 U/ML, UNK
     Route: 058
     Dates: start: 20040519
  16. MOTRIN [Concomitant]
     Dosage: 600 MG, PRN
     Route: 048
  17. DOBUTAMINE HCL [Concomitant]
     Dosage: UNK
     Dates: start: 20040521, end: 20040521

REACTIONS (13)
  - ANXIETY [None]
  - INJURY [None]
  - FEAR [None]
  - STRESS [None]
  - DEATH [None]
  - RENAL IMPAIRMENT [None]
  - UNEVALUABLE EVENT [None]
  - RENAL FAILURE [None]
  - RENAL INJURY [None]
  - MULTI-ORGAN FAILURE [None]
  - EMOTIONAL DISTRESS [None]
  - PAIN [None]
  - ANHEDONIA [None]
